FAERS Safety Report 18472962 (Version 1)
Quarter: 2020Q4

REPORT INFORMATION
  Report Type: Spontaneous
  Country: US (occurrence: US)
  Receive Date: 20201105
  Receipt Date: 20201105
  Transmission Date: 20210114
  Serious: No
  Sender: FDA-Public Use
  Company Number: None

PATIENT
  Age: 52 Year
  Sex: Female
  Weight: 78.12 kg

DRUGS (12)
  1. LYRICA [Concomitant]
     Active Substance: PREGABALIN
  2. METFORMIN 500MG [Concomitant]
     Active Substance: METFORMIN HYDROCHLORIDE
  3. MORPHINE ER 15MG [Concomitant]
     Active Substance: MORPHINE
  4. METAXALONE 800MG [Concomitant]
  5. OMEPRAZOLE 20MG [Concomitant]
     Active Substance: OMEPRAZOLE
  6. GLIPIZIDE 5MG [Concomitant]
     Active Substance: GLIPIZIDE
  7. TRULICITY 1.5MG/0.5ML [Concomitant]
  8. CAPECITABINE. [Suspect]
     Active Substance: CAPECITABINE
     Indication: COLON CANCER
     Route: 048
     Dates: start: 20200930
  9. TYLENOL [Concomitant]
     Active Substance: ACETAMINOPHEN
  10. TIZANIDINE 4MG [Concomitant]
     Active Substance: TIZANIDINE
  11. CAPECITABINE. [Suspect]
     Active Substance: CAPECITABINE
     Indication: COLON CANCER
     Route: 048
     Dates: start: 20200930
  12. ZOLPIDEM [Concomitant]
     Active Substance: ZOLPIDEM TARTRATE

REACTIONS (3)
  - Alopecia [None]
  - Skin fissures [None]
  - Dry skin [None]

NARRATIVE: CASE EVENT DATE: 20201105
